FAERS Safety Report 4635311-8 (Version None)
Quarter: 2005Q2

REPORT INFORMATION
  Report Type: 
  Country: None (occurrence: None)
  Receive Date: 20050411
  Receipt Date: 20050401
  Transmission Date: 20051028
  Serious: Yes (Hospitalization, Other)
  Sender: FDA-Public Use
  Company Number: KII-2005-0015734

PATIENT
  Age: 25 Year
  Sex: Male

DRUGS (2)
  1. MORPHINE SULFATE [Suspect]
     Indication: DRUG USE FOR UNKNOWN INDICATION
     Dosage: SEE TEXT, ORAL
     Route: 048
  2. TETRAHYDROCANNABINOL (TETRAHYDROCANNIBOL) [Suspect]
     Indication: DRUG USE FOR UNKNOWN INDICATION

REACTIONS (9)
  - ASPIRATION [None]
  - BREATH SOUNDS DECREASED [None]
  - DEPRESSED LEVEL OF CONSCIOUSNESS [None]
  - INTENTIONAL MISUSE [None]
  - OVERDOSE [None]
  - OXYGEN SATURATION DECREASED [None]
  - POLYSUBSTANCE ABUSE [None]
  - SOMNOLENCE [None]
  - VOMITING [None]
